FAERS Safety Report 6400463-6 (Version None)
Quarter: 2009Q4

REPORT INFORMATION
  Report Type: 
  Country: None (occurrence: None)
  Receive Date: 20091007
  Receipt Date: 20091007
  Transmission Date: 20100525
  Serious: Yes (Life-Threatening, Hospitalization, Disabling)
  Sender: FDA-Public Use
  Company Number: None

PATIENT
  Age: 88 Year
  Sex: Female
  Weight: 56.246 kg

DRUGS (1)
  1. SPIRIVA [Suspect]
     Indication: EMPHYSEMA
     Dosage: ONCE PER DAY INHAL
     Dates: start: 20090503, end: 20091001

REACTIONS (2)
  - BLOOD PRESSURE INCREASED [None]
  - PULMONARY THROMBOSIS [None]
